FAERS Safety Report 6648218-1 (Version None)
Quarter: 2010Q1

REPORT INFORMATION
  Report Type: 
  Country: None (occurrence: None)
  Receive Date: 20100324
  Receipt Date: 20100312
  Transmission Date: 20100710
  Serious: Yes (Death, Congenital Anomaly)
  Sender: FDA-Public Use
  Company Number: US-BAYER-201019278GPV

PATIENT
  Sex: Male

DRUGS (2)
  1. ASPIRIN [Suspect]
     Indication: MIGRAINE
     Dosage: 3 TO 4.5 G PER DAY VIA MOTHER
  2. ACETAMINOPHEN [Suspect]
     Indication: MIGRAINE
     Dosage: 6 TO 10 TABLETS PER DAY VIA MOTHER

REACTIONS (10)
  - ANAL ATRESIA [None]
  - ATELECTASIS [None]
  - CONGENITAL TRICUSPID VALVE ATRESIA [None]
  - CYCLOPIA [None]
  - EJECTION FRACTION DECREASED [None]
  - FOETAL GROWTH RETARDATION [None]
  - PENIS DISORDER [None]
  - SINGLE FUNCTIONAL KIDNEY [None]
  - UMBILICAL CORD ABNORMALITY [None]
  - URETERAL DISORDER [None]
